FAERS Safety Report 24796428 (Version 1)
Quarter: 2025Q1

REPORT INFORMATION
  Report Type: Spontaneous
  Country: NL (occurrence: NL)
  Receive Date: 20250101
  Receipt Date: 20250101
  Transmission Date: 20250408
  Serious: Yes (Hospitalization)
  Sender: ACCORD
  Company Number: None

PATIENT
  Age: 75 Year
  Sex: Male

DRUGS (6)
  1. ATORVASTATIN [Suspect]
     Active Substance: ATORVASTATIN
     Indication: Hypercholesterolaemia
     Dosage: STRENGTH: 80MG, 1DD1
     Dates: start: 20240315, end: 20240731
  2. MINOCYCLINE [Suspect]
     Active Substance: MINOCYCLINE HYDROCHLORIDE
     Indication: Rash pustular
     Dosage: STRENGTH: 100MG, 1DD1
     Dates: start: 20240711, end: 20240731
  3. OMEPRAZOLE [Concomitant]
     Active Substance: OMEPRAZOLE
  4. TICAGRELOR [Concomitant]
     Active Substance: TICAGRELOR
  5. ASPIRIN [Concomitant]
     Active Substance: ASPIRIN
  6. FOSINOPRIL [Concomitant]
     Active Substance: FOSINOPRIL

REACTIONS (3)
  - Hepatitis [Recovered/Resolved]
  - Arrhythmia [Recovered/Resolved]
  - Kidney infection [Recovered/Resolved]
